FAERS Safety Report 18367102 (Version 7)
Quarter: 2020Q4

REPORT INFORMATION
  Report Type: Spontaneous
  Country: PT (occurrence: PT)
  Receive Date: 20201009
  Receipt Date: 20201130
  Transmission Date: 20210114
  Serious: Yes (Hospitalization, Other)
  Sender: FDA-Public Use
  Company Number: PT-MYLANLABS-2020M1084936

PATIENT
  Age: 36 Year
  Sex: Male

DRUGS (1)
  1. TERBINAFINE. [Suspect]
     Active Substance: TERBINAFINE
     Indication: ONYCHOMYCOSIS
     Dosage: 250 MILLIGRAM, QD (250MG / DAY FOR)
     Route: 065

REACTIONS (10)
  - Cholestasis [Recovered/Resolved]
  - Choluria [Recovered/Resolved]
  - Drug-induced liver injury [Recovered/Resolved]
  - Deficiency of bile secretion [Recovered/Resolved]
  - Pruritus [Recovered/Resolved]
  - Abdominal pain upper [Recovered/Resolved]
  - Asthenia [Recovered/Resolved]
  - Abdominal discomfort [Recovered/Resolved]
  - Jaundice [Recovered/Resolved]
  - Herbal interaction [Recovered/Resolved]
